FAERS Safety Report 5319193-7 (Version None)
Quarter: 2007Q2

REPORT INFORMATION
  Report Type: 
  Country: None (occurrence: None)
  Receive Date: 20070508
  Receipt Date: 20070430
  Transmission Date: 20071010
  Serious: Yes (Hospitalization)
  Sender: FDA-Public Use
  Company Number: US-ASTRAZENECA-2006UW10765

PATIENT
  Sex: Female
  Weight: 95.5 kg

DRUGS (3)
  1. SEROQUEL [Suspect]
     Indication: SCHIZOPHRENIA
     Route: 048
     Dates: start: 19970101, end: 20050101
  2. ABILIFY [Concomitant]
  3. OLANZAPINE [Concomitant]

REACTIONS (3)
  - BLOOD DISORDER [None]
  - DIABETES MELLITUS [None]
  - SYNCOPE [None]
